FAERS Safety Report 13567148 (Version 1)
Quarter: 2017Q2

REPORT INFORMATION
  Report Type: Spontaneous
  Country: US (occurrence: US)
  Receive Date: 20170521
  Receipt Date: 20170521
  Transmission Date: 20170830
  Serious: Yes (Hospitalization)
  Sender: FDA-Public Use
  Company Number: None

PATIENT
  Age: 41 Year
  Sex: Female
  Weight: 70.2 kg

DRUGS (4)
  1. STIOLTO RESPIMAT [Suspect]
     Active Substance: OLODATEROL HYDROCHLORIDE\TIOTROPIUM BROMIDE MONOHYDRATE
     Indication: WHEEZING
     Dosage: OTHER STRENGTH:MCG PER INHALE;OTHER FREQUENCY:2 PUFFS DAILY;?
     Route: 055
     Dates: start: 20170321, end: 20170511
  2. ZANAFLEX [Concomitant]
     Active Substance: TIZANIDINE HYDROCHLORIDE
  3. XANAX [Concomitant]
     Active Substance: ALPRAZOLAM
  4. SYNTRHOID [Concomitant]

REACTIONS (1)
  - Epistaxis [None]

NARRATIVE: CASE EVENT DATE: 20170514
